FAERS Safety Report 6822488-9 (Version None)
Quarter: 2010Q3

REPORT INFORMATION
  Report Type: 
  Country: None (occurrence: None)
  Receive Date: 20100708
  Receipt Date: 20100628
  Transmission Date: 20110219
  Serious: Yes (Other)
  Sender: FDA-Public Use
  Company Number: GR-BRISTOL-MYERS SQUIBB COMPANY-15169329

PATIENT
  Age: 49 Year
  Sex: Male

DRUGS (5)
  1. STREPTOMYCIN [Suspect]
     Indication: TUBERCULOSIS
  2. INFLIXIMAB [Suspect]
  3. ISONIAZID [Suspect]
     Indication: TUBERCULOSIS
  4. RIFAMPICIN [Suspect]
     Indication: TUBERCULOSIS
  5. PYRAZINAMIDE [Suspect]
     Indication: TUBERCULOSIS

REACTIONS (1)
  - IMMUNE RECONSTITUTION SYNDROME [None]
